FAERS Safety Report 7012986-X (Version None)
Quarter: 2010Q3

REPORT INFORMATION
  Report Type: 
  Country: None (occurrence: None)
  Receive Date: 20100915
  Receipt Date: 20090727
  Transmission Date: 20110219
  Serious: Yes (Other)
  Sender: FDA-Public Use
  Company Number: US-WYE-H10351009

PATIENT
  Age: 26 Year
  Sex: Female
  Weight: 59.02 kg

DRUGS (2)
  1. ADVIL [Suspect]
     Indication: DYSMENORRHOEA
     Dosage: 2 TABLETS PRN, ORAL
     Route: 048
     Dates: start: 19990101
  2. ADVIL [Suspect]
     Indication: HEADACHE
     Dosage: 2 TABLETS PRN, ORAL
     Route: 048
     Dates: start: 19990101

REACTIONS (3)
  - CHEILITIS [None]
  - RASH [None]
  - URTICARIA [None]
